FAERS Safety Report 21464845 (Version 2)
Quarter: 2022Q4

REPORT INFORMATION
  Report Type: Spontaneous
  Country: CA (occurrence: CA)
  Receive Date: 20221017
  Receipt Date: 20221025
  Transmission Date: 20230113
  Serious: Yes (Other)
  Sender: FDA-Public Use
  Company Number: CA-CELLTRION INC.-2022CA005349

PATIENT

DRUGS (5)
  1. INFLIXIMAB [Suspect]
     Active Substance: INFLIXIMAB
     Indication: Rheumatoid arthritis
     Dosage: 120 MG, EVERY 7 DAYS
     Route: 058
     Dates: start: 20220113
  2. INFLIXIMAB [Suspect]
     Active Substance: INFLIXIMAB
     Indication: Ankylosing spondylitis
     Dosage: WEEKS
     Route: 058
     Dates: start: 20220614
  3. PREDNISONE [Concomitant]
     Active Substance: PREDNISONE
     Dosage: 17 MG DAILY
     Dates: start: 2021
  4. PREDNISONE [Concomitant]
     Active Substance: PREDNISONE
     Dosage: 2.5 MG PER WEEK
  5. PREDNISONE [Concomitant]
     Active Substance: PREDNISONE
     Dosage: TAPER DOWN BY 2 MG DAILY

REACTIONS (6)
  - Rheumatoid arthritis [Unknown]
  - Trigger finger [Unknown]
  - Tremor [Unknown]
  - Arthralgia [Recovering/Resolving]
  - Back pain [Unknown]
  - Off label use [Unknown]
